FAERS Safety Report 20527249 (Version 1)
Quarter: 2022Q1

REPORT INFORMATION
  Report Type: Report from Study
  Country: CO (occurrence: CO)
  Receive Date: 20220228
  Receipt Date: 20220228
  Transmission Date: 20220423
  Serious: Yes (Death, Other)
  Sender: FDA-Public Use
  Company Number: CO-NOVARTISPH-NVSC2022CO046021

PATIENT
  Age: 88 Year
  Sex: Female

DRUGS (2)
  1. ELTROMBOPAG OLAMINE [Suspect]
     Active Substance: ELTROMBOPAG OLAMINE
     Indication: Immune thrombocytopenia
     Dosage: 1 OF 50 MG DAILY
     Route: 048
  2. CORTISOL [Concomitant]
     Active Substance: HYDROCORTISONE
     Indication: Product used for unknown indication
     Dosage: BEFORE ELTROMBOPAG
     Route: 065

REACTIONS (8)
  - Death [Fatal]
  - Craniocerebral injury [Unknown]
  - Septic shock [Unknown]
  - Multiple organ dysfunction syndrome [Unknown]
  - Platelet count decreased [Unknown]
  - Ill-defined disorder [Unknown]
  - Fall [Unknown]
  - Infection [Unknown]

NARRATIVE: CASE EVENT DATE: 20220214
